FAERS Safety Report 5228609-6 (Version None)
Quarter: 2007Q1

REPORT INFORMATION
  Report Type: 
  Country: None (occurrence: None)
  Receive Date: 20070131
  Receipt Date: 20070118
  Transmission Date: 20070707
  Serious: Yes (Other)
  Sender: FDA-Public Use
  Company Number: B0454932A

PATIENT
  Age: 65 Year
  Sex: Female

DRUGS (9)
  1. PAXIL [Suspect]
     Indication: DRUG USE FOR UNKNOWN INDICATION
     Dosage: PER DAY /
  2. ETIZOLAM [Concomitant]
  3. ZOLPIDEM TARTRATE [Concomitant]
  4. VALSARTAN [Concomitant]
  5. VERAPAMIL [Concomitant]
  6. ASPIRIN [Concomitant]
  7. WARFARIN SODIUM [Concomitant]
  8. LOXOPROFEN [Concomitant]
  9. TEPRENONE [Concomitant]

REACTIONS (9)
  - AGITATION [None]
  - ANXIETY [None]
  - CHILLS [None]
  - CLONUS [None]
  - DYSARTHRIA [None]
  - HEADACHE [None]
  - SEROTONIN SYNDROME [None]
  - TREMOR [None]
  - VISUAL ACUITY REDUCED [None]
